FAERS Safety Report 9044894 (Version 1)
Quarter: 2013Q1

REPORT INFORMATION
  Report Type: Report from Study
  Country: JP (occurrence: JP)
  Receive Date: 20130130
  Receipt Date: 20130130
  Transmission Date: 20140127
  Serious: Yes (Other)
  Sender: FDA-Public Use
  Company Number: JP-GLAXOSMITHKLINE-B0859869A

PATIENT
  Age: 5 Decade
  Sex: Male

DRUGS (6)
  1. ZEFIX 100 [Suspect]
     Indication: HEPATIC CIRRHOSIS
     Dosage: 100MG PER DAY
     Route: 048
     Dates: start: 20060414
  2. HEPSERA [Concomitant]
     Indication: HEPATIC CIRRHOSIS
     Dosage: 10MG PER DAY
     Route: 048
     Dates: start: 20061013, end: 20070706
  3. LIVACT [Concomitant]
     Indication: HEPATIC CIRRHOSIS
     Route: 048
  4. ALDACTONE A [Concomitant]
     Indication: HEPATIC CIRRHOSIS
     Route: 048
  5. DIART [Concomitant]
     Indication: HEPATIC CIRRHOSIS
     Route: 048
  6. MONILAC [Concomitant]
     Indication: HEPATIC CIRRHOSIS
     Route: 048

REACTIONS (1)
  - Erosive duodenitis [Unknown]
